FAERS Safety Report 9961883 (Version 2)
Quarter: 2014Q1

REPORT INFORMATION
  Report Type: Spontaneous
  Country: US (occurrence: US)
  Receive Date: 20140305
  Receipt Date: 20140305
  Transmission Date: 20141002
  Serious: Yes (Death, Disabling)
  Sender: FDA-Public Use
  Company Number: US-GE HEALTHCARE MEDICAL DIAGNOSTICS-OSCN-PR-0807S-0452

PATIENT
  Age: 63 Year
  Sex: Male
  Weight: 158.9 kg

DRUGS (5)
  1. OMNISCAN [Suspect]
     Indication: PAIN
     Route: 042
     Dates: start: 20051004, end: 20051004
  2. OMNISCAN [Suspect]
     Indication: OSTEOARTHRITIS
     Route: 042
     Dates: start: 20051009, end: 20051009
  3. OMNISCAN [Suspect]
     Indication: ABSCESS
     Route: 042
     Dates: start: 20051217, end: 20051217
  4. OMNISCAN [Suspect]
     Route: 042
     Dates: start: 20060307, end: 20060307
  5. CORTISONE [Concomitant]

REACTIONS (1)
  - Nephrogenic systemic fibrosis [Fatal]
